FAERS Safety Report 19986559 (Version 1)
Quarter: 2021Q4

REPORT INFORMATION
  Report Type: Spontaneous
  Country: GB (occurrence: GB)
  Receive Date: 20211022
  Receipt Date: 20211022
  Transmission Date: 20220303
  Serious: Yes (Hospitalization, Disabling, Other)
  Sender: FDA-Public Use
  Company Number: GB-SANOFI-AVENTIS-2010SA026366

PATIENT
  Age: 70 Year
  Sex: Male

DRUGS (25)
  1. ERYTHROMYCIN [Suspect]
     Active Substance: ERYTHROMYCIN
     Indication: Periorbital cellulitis
     Route: 048
  2. ERYTHROMYCIN [Suspect]
     Active Substance: ERYTHROMYCIN
     Indication: Chalazion
  3. ERYTHROMYCIN [Suspect]
     Active Substance: ERYTHROMYCIN
     Indication: Antibiotic therapy
  4. ERYTHROMYCIN [Suspect]
     Active Substance: ERYTHROMYCIN
     Indication: Cellulitis
  5. ASPIRIN [Suspect]
     Active Substance: ASPIRIN
     Indication: Chest pain
     Dosage: 300 MG
     Route: 065
  6. ASPIRIN [Suspect]
     Active Substance: ASPIRIN
     Indication: Antiplatelet therapy
     Route: 065
  7. CIPROFLOXACIN [Suspect]
     Active Substance: CIPROFLOXACIN
     Indication: Chalazion
     Route: 048
  8. CIPROFLOXACIN [Suspect]
     Active Substance: CIPROFLOXACIN
     Indication: Periorbital cellulitis
  9. CIPROFLOXACIN [Suspect]
     Active Substance: CIPROFLOXACIN
     Indication: Antibiotic therapy
  10. CLOPIDOGREL BISULFATE [Suspect]
     Active Substance: CLOPIDOGREL BISULFATE
     Indication: Chest pain
     Route: 048
  11. CLOPIDOGREL BISULFATE [Suspect]
     Active Substance: CLOPIDOGREL BISULFATE
     Indication: Antiplatelet therapy
     Route: 048
  12. TEICOPLANIN [Suspect]
     Active Substance: TEICOPLANIN
     Indication: Chalazion
     Route: 030
  13. TEICOPLANIN [Suspect]
     Active Substance: TEICOPLANIN
     Indication: Periorbital cellulitis
     Route: 051
  14. TEICOPLANIN [Suspect]
     Active Substance: TEICOPLANIN
     Indication: Cellulitis
  15. TEICOPLANIN [Suspect]
     Active Substance: TEICOPLANIN
     Indication: Antibiotic therapy
  16. WARFARIN SODIUM [Suspect]
     Active Substance: WARFARIN SODIUM
     Indication: Pulmonary embolism
     Route: 048
  17. WARFARIN SODIUM [Suspect]
     Active Substance: WARFARIN SODIUM
     Indication: Factor V deficiency
     Route: 048
  18. MEROPENEM [Suspect]
     Active Substance: MEROPENEM
     Indication: Cellulitis
     Route: 042
  19. MEROPENEM [Suspect]
     Active Substance: MEROPENEM
     Indication: Chalazion
     Route: 051
  20. MEROPENEM [Suspect]
     Active Substance: MEROPENEM
     Indication: Periorbital cellulitis
     Route: 030
  21. MEROPENEM [Suspect]
     Active Substance: MEROPENEM
     Indication: Antibiotic therapy
  22. METRONIDAZOLE [Suspect]
     Active Substance: METRONIDAZOLE
     Indication: Chalazion
     Route: 048
  23. METRONIDAZOLE [Suspect]
     Active Substance: METRONIDAZOLE
     Indication: Periorbital cellulitis
     Route: 051
  24. METRONIDAZOLE [Suspect]
     Active Substance: METRONIDAZOLE
     Indication: Antibiotic therapy
     Route: 030
  25. VITAMIN K [Concomitant]
     Active Substance: PHYTONADIONE
     Indication: Product used for unknown indication

REACTIONS (13)
  - International normalised ratio increased [Unknown]
  - Potentiating drug interaction [Unknown]
  - Hyphaema [Recovered/Resolved with Sequelae]
  - Intraocular pressure increased [Not Recovered/Not Resolved]
  - Headache [Not Recovered/Not Resolved]
  - Pyrexia [Unknown]
  - Eye pain [Recovered/Resolved with Sequelae]
  - Decreased appetite [Unknown]
  - Nausea [Unknown]
  - Visual impairment [Not Recovered/Not Resolved]
  - Visual acuity reduced [Recovered/Resolved with Sequelae]
  - Coagulation time prolonged [Recovered/Resolved]
  - Off label use [Unknown]
